FAERS Safety Report 5705977-X (Version None)
Quarter: 2008Q2

REPORT INFORMATION
  Report Type: 
  Country: None (occurrence: None)
  Receive Date: 20080415
  Receipt Date: 20080408
  Transmission Date: 20081010
  Serious: Yes (Other)
  Sender: FDA-Public Use
  Company Number: BR-PFIZER INC-2008011237

PATIENT
  Sex: Male
  Weight: 98 kg

DRUGS (3)
  1. FRONTAL [Suspect]
     Indication: SLEEP DISORDER
     Dosage: DAILY DOSE:.25MG
     Route: 048
  2. GINKGO BILOBA [Concomitant]
  3. CITALOPRAM HYDROBROMIDE [Concomitant]
     Dates: end: 20080101

REACTIONS (2)
  - DRUG INEFFECTIVE [None]
  - LABYRINTHITIS [None]
